FAERS Safety Report 5522367-3 (Version None)
Quarter: 2007Q4

REPORT INFORMATION
  Report Type: 
  Country: None (occurrence: None)
  Receive Date: 20071120
  Receipt Date: 20071109
  Transmission Date: 20080405
  Serious: Yes (Death, Other)
  Sender: FDA-Public Use
  Company Number: JP-PFIZER INC-2007095088

PATIENT
  Sex: Male
  Weight: 65.8 kg

DRUGS (11)
  1. VIAGRA [Suspect]
     Route: 048
  2. WARFARIN SODIUM [Concomitant]
     Route: 048
     Dates: start: 20070905, end: 20070918
  3. ASPIRIN [Concomitant]
     Route: 048
     Dates: start: 20070905, end: 20070918
  4. LASIX [Concomitant]
     Route: 048
     Dates: start: 20070905, end: 20070918
  5. SUNRYTHM [Concomitant]
     Route: 048
     Dates: start: 20070905, end: 20070918
  6. SIGMART [Concomitant]
     Route: 048
     Dates: start: 20070905, end: 20070918
  7. LOXONIN [Concomitant]
     Route: 048
     Dates: start: 20070905, end: 20070918
  8. GASTER [Concomitant]
     Route: 048
     Dates: start: 20070905, end: 20070918
  9. GLIMICRON [Concomitant]
     Route: 048
     Dates: start: 20070905, end: 20070918
  10. MEDET [Concomitant]
     Route: 048
     Dates: start: 20070905, end: 20070918
  11. LENDORMIN [Concomitant]
     Route: 048
     Dates: start: 20070905, end: 20070918

REACTIONS (1)
  - CARDIO-RESPIRATORY ARREST [None]
